FAERS Safety Report 14813453 (Version 3)
Quarter: 2020Q3

REPORT INFORMATION
  Report Type: Other
  Country: US (occurrence: US)
  Receive Date: 20180426
  Receipt Date: 20200910
  Transmission Date: 20201102
  Serious: Yes (Hospitalization, Other)
  Sender: FDA-Public Use
  Company Number: US-ROCHE-2112622

PATIENT
  Sex: Male
  Weight: 118.04 kg

DRUGS (8)
  1. ZONISAMIDE. [Concomitant]
     Active Substance: ZONISAMIDE
     Indication: MIGRAINE
     Dosage: ONGOING: YES
  2. MODAFINIL. [Concomitant]
     Active Substance: MODAFINIL
     Indication: FATIGUE
     Dosage: ONGOING: YES
  3. RIZATRIPTAN. [Concomitant]
     Active Substance: RIZATRIPTAN
     Indication: MIGRAINE
     Dosage: ONGOING:YES
  4. OCREVUS [Suspect]
     Active Substance: OCRELIZUMAB
     Indication: PRIMARY PROGRESSIVE MULTIPLE SCLEROSIS
     Route: 041
     Dates: start: 20170915
  5. AMPYRA [Concomitant]
     Active Substance: DALFAMPRIDINE
     Dosage: ONGOING: YES?WALKING
  6. OCREVUS [Suspect]
     Active Substance: OCRELIZUMAB
     Dosage: ONGOING NO
     Route: 041
     Dates: start: 20180423
  7. DONEPEZIL. [Concomitant]
     Active Substance: DONEPEZIL
     Indication: COGNITIVE DISORDER
     Dosage: ONGOING: YES
  8. OXYBUTYNIN. [Concomitant]
     Active Substance: OXYBUTYNIN CHLORIDE
     Dosage: ONGOOING: YES?BLADDER

REACTIONS (9)
  - Cyst [Recovered/Resolved]
  - Gingival swelling [Not Recovered/Not Resolved]
  - Wound [Unknown]
  - Infection [Not Recovered/Not Resolved]
  - Abscess limb [Unknown]
  - Gingivitis [Recovered/Resolved]
  - Anal fistula [Unknown]
  - Abscess [Unknown]
  - Tooth loss [Not Recovered/Not Resolved]

NARRATIVE: CASE EVENT DATE: 2018
